FAERS Safety Report 8404540 (Version 4)
Quarter: 2012Q4

REPORT INFORMATION
  Report Type: 
  Country: JP (occurrence: JP)
  Receive Date: 20120214
  Receipt Date: 20121228
  Transmission Date: 20130627
  Serious: Yes (Hospitalization)
  Sender: FDA-Public Use
  Company Number: JP-PFIZER INC-2012033897

PATIENT
  Age: 42 Year
  Sex: Male
  Weight: 76 kg

DRUGS (26)
  1. SUNITINIB MALATE [Suspect]
     Indication: GASTROINTESTINAL STROMAL TUMOUR
     Dosage: 50 mg, 1x/day
     Route: 048
     Dates: start: 20080925, end: 20080929
  2. SUNITINIB MALATE [Suspect]
     Dosage: 37.5 mg, 1x/day
     Route: 048
     Dates: start: 20081028, end: 20081125
  3. SUNITINIB MALATE [Suspect]
     Dosage: 37.5 mg, 1x/day
     Route: 048
     Dates: start: 20081209, end: 20081225
  4. SUNITINIB MALATE [Suspect]
     Dosage: 37.5 mg, 1x/day
     Route: 048
     Dates: start: 20090103, end: 20090116
  5. SUNITINIB MALATE [Suspect]
     Dosage: 37.5 mg, 1x/day
     Route: 048
     Dates: start: 20090123, end: 20090205
  6. SUNITINIB MALATE [Suspect]
     Dosage: 37.5 mg, 1x/day
     Route: 048
     Dates: start: 20090224, end: 20090309
  7. SUNITINIB MALATE [Suspect]
     Dosage: 37.5 mg, 1x/day
     Route: 048
     Dates: start: 20090316, end: 20090406
  8. SUNITINIB MALATE [Suspect]
     Dosage: 25 mg, 1x/day
     Route: 048
     Dates: start: 20090407, end: 20090413
  9. SUNITINIB MALATE [Suspect]
     Dosage: 37.5 mg, 1x/day
     Route: 048
     Dates: start: 20090430, end: 20090514
  10. SUNITINIB MALATE [Suspect]
     Dosage: 37.5 mg, 1x/day
     Route: 048
     Dates: start: 20090518
  11. SUNITINIB MALATE [Suspect]
     Dosage: 50 mg 1x/day for 4 days, 25 mg 1x/day for 3 days a week
     Route: 048
     Dates: start: 20090604, end: 20090807
  12. SUNITINIB MALATE [Suspect]
     Dosage: 50 mg 1x/day for 4 days, 25 mg 1x/day for 3 days a week
     Route: 048
     Dates: start: 20090815, end: 20090826
  13. SUNITINIB MALATE [Suspect]
     Dosage: 50 mg 1x/day for 4 days, 25 mg 1x/day for 3 days a week
     Route: 048
     Dates: end: 20091219
  14. SUNITINIB MALATE [Suspect]
     Dosage: 50 mg, 1x/day
     Route: 048
     Dates: start: 20100107, end: 20100217
  15. SUNITINIB MALATE [Suspect]
     Dosage: UNK
     Route: 048
     Dates: start: 20100222, end: 20100227
  16. SUNITINIB MALATE [Suspect]
     Dosage: 50 mg 1x/day for 4 days, 25 mg 1x/day for 3 days a week
     Route: 048
     Dates: start: 20100303, end: 20100313
  17. SUNITINIB MALATE [Suspect]
     Dosage: 37.5 mg, 1x/day
     Route: 048
     Dates: start: 20100323, end: 20100510
  18. SUNITINIB MALATE [Suspect]
     Dosage: 37.5 mg, 1x/day
     Route: 048
     Dates: start: 20100524, end: 20120606
  19. SUNITINIB MALATE [Suspect]
     Dosage: 37.5 mg, 1x/day
     Route: 048
     Dates: start: 20100612
  20. FERROMIA [Concomitant]
     Dosage: 50 mg, 2x/day
     Route: 048
  21. MAGNESIUM OXIDE [Concomitant]
     Indication: PROPHYLAXIS
     Dosage: UNK
     Route: 048
  22. ALLELOCK [Concomitant]
     Indication: ITCHING
     Dosage: 5 mg, 2x/day
     Route: 048
  23. MYSLEE [Concomitant]
     Indication: PROPHYLAXIS
     Dosage: 5 mg, UNK
     Route: 048
  24. LOXOPROFEN [Concomitant]
     Indication: GASTROINTESTINAL STROMAL TUMOUR
     Dosage: 60 mg, 3x/day
     Route: 048
  25. SELBEX [Concomitant]
     Indication: PROPHYLAXIS
     Dosage: 50 mg, 3x/day
     Route: 048
  26. LASIX [Concomitant]
     Indication: GASTROINTESTINAL STROMAL TUMOUR
     Dosage: 20 mg, 1x/day
     Route: 048

REACTIONS (6)
  - Haemoptysis [Not Recovered/Not Resolved]
  - Pleural effusion [Unknown]
  - Interstitial lung disease [Unknown]
  - Pneumonitis [Unknown]
  - Pyrexia [Recovered/Resolved]
  - Diarrhoea [Recovered/Resolved]
